FAERS Safety Report 21834322 (Version 1)
Quarter: 2023Q1

REPORT INFORMATION
  Report Type: Spontaneous
  Country: US (occurrence: None)
  Receive Date: 20230108
  Receipt Date: 20230108
  Transmission Date: 20230417
  Serious: No
  Sender: FDA-Public Use
  Company Number: US-ROCHE-3164616

PATIENT
  Sex: Male
  Weight: 58 kg

DRUGS (1)
  1. HEMLIBRA [Suspect]
     Active Substance: EMICIZUMAB-KXWH
     Indication: Factor VII deficiency
     Dosage: LAST PRESCRIBED DOSE 90 MG
     Route: 058
     Dates: start: 20200209

REACTIONS (5)
  - Drug specific antibody present [Unknown]
  - Arthralgia [Unknown]
  - Emotional disorder [Unknown]
  - Ligament sprain [Unknown]
  - Epistaxis [Unknown]
